FAERS Safety Report 7560340-4 (Version None)
Quarter: 2011Q2

REPORT INFORMATION
  Report Type: 
  Country: None (occurrence: None)
  Receive Date: 20110621
  Receipt Date: 20110614
  Transmission Date: 20111010
  Serious: Yes (Hospitalization, Other)
  Sender: FDA-Public Use
  Company Number: CH-US-EMD SERONO, INC.-7053471

PATIENT
  Sex: Female
  Weight: 70 kg

DRUGS (4)
  1. PAROXETINE HCL [Concomitant]
     Indication: DEPRESSION
     Route: 048
  2. ATENOLOL AND CHLORTHALIDONE [Concomitant]
     Indication: HYPERTENSION
     Route: 048
  3. REBIF [Suspect]
     Indication: MULTIPLE SCLEROSIS
     Route: 058
     Dates: start: 20041216
  4. MEFENAMIC ACID [Concomitant]
     Indication: PAIN
     Route: 048

REACTIONS (2)
  - INFLUENZA LIKE ILLNESS [None]
  - BREAST CANCER IN SITU [None]
